FAERS Safety Report 10082927 (Version 2)
Quarter: 2014Q2

REPORT INFORMATION
  Report Type: Spontaneous
  Country: HR (occurrence: HR)
  Receive Date: 20140417
  Receipt Date: 20140418
  Transmission Date: 20141212
  Serious: Yes (Other)
  Sender: FDA-Public Use
  Company Number: HR-ROCHE-1379347

PATIENT
  Age: 48 Year
  Sex: Male
  Weight: 79 kg

DRUGS (2)
  1. XELODA [Suspect]
     Indication: COLON CANCER
     Route: 048
     Dates: start: 201312
  2. XELODA [Suspect]
     Dosage: 3 TABLETS IN THE MORNING AND 4 TABLETS IN THE EVENING.
     Route: 048

REACTIONS (1)
  - Hyperlipidaemia [Recovered/Resolved]
